FAERS Safety Report 19605495 (Version 1)
Quarter: 2021Q3

REPORT INFORMATION
  Report Type: Spontaneous
  Country: SE (occurrence: SE)
  Receive Date: 20210723
  Receipt Date: 20210723
  Transmission Date: 20211014
  Serious: Yes (Hospitalization)
  Sender: FDA-Public Use
  Company Number: SE-ANIPHARMA-2021-SE-000015

PATIENT
  Age: 84 Year
  Sex: Female

DRUGS (10)
  1. METOPROLOL. [Suspect]
     Active Substance: METOPROLOL
     Dosage: UNKNOWN DOSE AND FREQUENCY
     Route: 065
  2. TROMBYL [Concomitant]
     Active Substance: ASPIRIN
     Route: 065
  3. CANDESARTAN CILEXETIL. [Suspect]
     Active Substance: CANDESARTAN CILEXETIL
     Indication: HYPERTENSION
     Dosage: UNKNOWN DOSE AND FREQUENCY
     Route: 048
  4. IMDUR [Concomitant]
     Active Substance: ISOSORBIDE MONONITRATE
     Route: 065
  5. NOVORAPID [Concomitant]
     Active Substance: INSULIN ASPART
     Route: 065
  6. METFORMIN(METFORMIN HYDROCHLORIDE) [Suspect]
     Active Substance: METFORMIN HYDROCHLORIDE
     Dosage: UNKNOWN DOSE AND FREQUENCY
     Route: 065
  7. LASIX [Concomitant]
     Active Substance: FUROSEMIDE
     Dosage: UNKNOWN DOSE AND FREQUENCY
  8. ETORICOXIB. [Suspect]
     Active Substance: ETORICOXIB
     Dosage: UNKNOWN DOSE DAILY
     Dates: start: 20210527, end: 20210606
  9. BETOLVEX [Concomitant]
     Dosage: UNKNOWN DOSE AND FREQUENCY
     Route: 065
  10. ISOPHANE INSULIN [Concomitant]
     Active Substance: INSULIN NOS
     Dosage: UNKNOWN DOSE AND FREQUENCY
     Route: 065

REACTIONS (9)
  - Ascites [Not Recovered/Not Resolved]
  - Abdominal distension [Not Recovered/Not Resolved]
  - Fluid retention [Not Recovered/Not Resolved]
  - C-reactive protein abnormal [Not Recovered/Not Resolved]
  - Peripheral swelling [Not Recovered/Not Resolved]
  - Dyspnoea [Not Recovered/Not Resolved]
  - Oedema peripheral [Not Recovered/Not Resolved]
  - Pulmonary oedema [Not Recovered/Not Resolved]
  - Weight increased [Not Recovered/Not Resolved]
